FAERS Safety Report 7522949-3 (Version None)
Quarter: 2011Q2

REPORT INFORMATION
  Report Type: 
  Country: None (occurrence: None)
  Receive Date: 20110603
  Receipt Date: 20110525
  Transmission Date: 20111010
  Serious: Yes (Death, Other)
  Sender: FDA-Public Use
  Company Number: JP-AMGEN-JPNCT2011027160

PATIENT
  Age: 78 Year
  Sex: Male
  Weight: 65 kg

DRUGS (5)
  1. PANITUMUMAB [Suspect]
     Indication: COLORECTAL CANCER
     Dosage: 6 MG/KG, Q2WK
     Route: 041
     Dates: start: 20101105, end: 20110401
  2. CORTICOSTEROIDS [Concomitant]
     Indication: PROPHYLAXIS
  3. AMLODIPINE [Concomitant]
     Route: 048
  4. ANTIHISTAMINES [Concomitant]
     Indication: PROPHYLAXIS
  5. HOKUNALIN [Concomitant]
     Route: 062

REACTIONS (2)
  - INTERSTITIAL LUNG DISEASE [None]
  - DERMATITIS [None]
